FAERS Safety Report 4302965-5 (Version None)
Quarter: 2004Q1

REPORT INFORMATION
  Report Type: 
  Country: None (occurrence: None)
  Receive Date: 20040223
  Receipt Date: 20040223
  Transmission Date: 20041129
  Serious: Yes (Life-Threatening)
  Sender: FDA-Public Use
  Company Number: None

PATIENT
  Age: 42 Year
  Sex: Male
  Weight: 79.3795 kg

DRUGS (1)
  1. RISPERIDONE [Suspect]
     Indication: DEPRESSION
     Dosage: 0.5 MG PO
     Route: 048
     Dates: start: 20040101, end: 20040219

REACTIONS (2)
  - ANAESTHETIC COMPLICATION CARDIAC [None]
  - CARDIAC ARREST [None]
